FAERS Safety Report 12716925 (Version 1)
Quarter: 2016Q3

REPORT INFORMATION
  Report Type: Spontaneous
  Country: FR (occurrence: FR)
  Receive Date: 20160906
  Receipt Date: 20160906
  Transmission Date: 20161109
  Serious: Yes (Life-Threatening, Hospitalization, Other)
  Sender: FDA-Public Use
  Company Number: FR-PFIZER INC-2016412292

PATIENT
  Age: 47 Year
  Sex: Female

DRUGS (4)
  1. XANAX [Suspect]
     Active Substance: ALPRAZOLAM
     Dosage: 10 MG (0.50 MG X 2), SINGLE
     Route: 048
     Dates: start: 20160719, end: 20160719
  2. TRAMADOL HYDROCHLORIDE. [Suspect]
     Active Substance: TRAMADOL HYDROCHLORIDE
     Dosage: 3200 MG (100 MG X 32), SINGLE
     Route: 048
     Dates: start: 20160719, end: 20160719
  3. CYMBALTA [Concomitant]
     Active Substance: DULOXETINE HYDROCHLORIDE
     Dosage: 50 MG, 1X/DAY
  4. TRAMADOL HYDROCHLORIDE. [Suspect]
     Active Substance: TRAMADOL HYDROCHLORIDE
     Dosage: 100 MG, 2X/DAY
     Route: 048
     Dates: end: 20160718

REACTIONS (9)
  - Intentional overdose [Recovered/Resolved]
  - Pneumonia aspiration [Unknown]
  - Toxicity to various agents [Recovered/Resolved]
  - Hypoglycaemia [Recovered/Resolved]
  - Haemodynamic instability [Recovered/Resolved]
  - Neurological decompensation [Recovered/Resolved]
  - Aplastic anaemia [Unknown]
  - Respiratory failure [Recovered/Resolved]
  - Atelectasis [Unknown]

NARRATIVE: CASE EVENT DATE: 201607
